FAERS Safety Report 23534972 (Version 3)
Quarter: 2024Q2

REPORT INFORMATION
  Report Type: Report from Study
  Country: DE (occurrence: DE)
  Receive Date: 20240217
  Receipt Date: 20240414
  Transmission Date: 20240715
  Serious: Yes (Life-Threatening, Hospitalization)
  Sender: FDA-Public Use
  Company Number: DE-JNJFOC-20240242648

PATIENT
  Age: 56 Year
  Sex: Female
  Weight: 128 kg

DRUGS (2)
  1. SPRAVATO [Suspect]
     Active Substance: ESKETAMINE
     Indication: Depression
     Dosage: UNIT WAS REPORTED AS 84 MG.
     Dates: start: 20240201, end: 20240208
  2. SPRAVATO [Suspect]
     Active Substance: ESKETAMINE
     Dosage: DOSE WAS REPORTED AS 56 MG/84 MG.
     Dates: start: 20240212, end: 20240212

REACTIONS (1)
  - Pulmonary embolism [Recovered/Resolved]

NARRATIVE: CASE EVENT DATE: 20240214
